FAERS Safety Report 11805534 (Version 1)
Quarter: 2015Q4

REPORT INFORMATION
  Report Type: Other
  Country: US (occurrence: US)
  Receive Date: 20151207
  Receipt Date: 20151207
  Transmission Date: 20160305
  Serious: Yes (Death, Life-Threatening, Other)
  Sender: FDA-Public Use
  Company Number: US-DEXPHARM-20152315

PATIENT
  Age: 56 Year
  Sex: Female

DRUGS (5)
  1. LEVETIRACETAM. [Suspect]
     Active Substance: LEVETIRACETAM
  2. BUTALBITAL [Suspect]
     Active Substance: BUTALBITAL
  3. DULOXETINE. [Suspect]
     Active Substance: DULOXETINE
  4. METAXALONE. [Suspect]
     Active Substance: METAXALONE
  5. PARACETAMOL [Suspect]
     Active Substance: ACETAMINOPHEN

REACTIONS (2)
  - Completed suicide [Fatal]
  - Toxicity to various agents [Fatal]
